FAERS Safety Report 6137961-9 (Version None)
Quarter: 2009Q1

REPORT INFORMATION
  Report Type: 
  Country: None (occurrence: None)
  Receive Date: 20090331
  Receipt Date: 20090319
  Transmission Date: 20090719
  Serious: Yes (Hospitalization)
  Sender: FDA-Public Use
  Company Number: IT-PFIZER INC-2009166337

PATIENT

DRUGS (2)
  1. DALACIN [Suspect]
     Dosage: UNK
     Route: 042
     Dates: start: 20090122, end: 20090122
  2. SELEPARINA [Concomitant]

REACTIONS (3)
  - ERYTHEMA [None]
  - PYREXIA [None]
  - TACHYCARDIA [None]
